FAERS Safety Report 5610705-2 (Version None)
Quarter: 2008Q1

REPORT INFORMATION
  Report Type: 
  Country: None (occurrence: None)
  Receive Date: 20080130
  Receipt Date: 20080130
  Transmission Date: 20080703
  Serious: Yes (Other)
  Sender: FDA-Public Use
  Company Number: None

PATIENT
  Age: 59 Year
  Sex: Male
  Weight: 120.2032 kg

DRUGS (1)
  1. AVELOX [Suspect]
     Indication: COUGH
     Dosage: ONE TABLET EVERY 24 HOURS PO
     Route: 048
     Dates: start: 20080124, end: 20080128

REACTIONS (1)
  - DIARRHOEA [None]
